FAERS Safety Report 9820533 (Version 1)
Quarter: 2014Q1

REPORT INFORMATION
  Report Type: Spontaneous
  Country: US (occurrence: US)
  Receive Date: 20140116
  Receipt Date: 20140116
  Transmission Date: 20141002
  Serious: Yes (Other)
  Sender: FDA-Public Use
  Company Number: US-PFIZER INC-2014010272

PATIENT
  Age: 65 Year
  Sex: Female
  Weight: 73.47 kg

DRUGS (10)
  1. LIPITOR [Suspect]
     Indication: HYPERLIPIDAEMIA
     Dosage: 20 MG, DAILY
  2. CELEBREX [Suspect]
     Indication: BACK PAIN
     Dosage: UNK, 2X/DAY
     Dates: end: 201310
  3. PREMARIN [Suspect]
     Indication: CYSTITIS INTERSTITIAL
     Dosage: UNK
     Route: 067
  4. NEURONTIN [Suspect]
     Indication: MIGRAINE
     Dosage: 100MG IN MORNING AND 300MG AT NIGHT
  5. NEURONTIN [Suspect]
     Indication: HEADACHE
  6. NEURONTIN [Suspect]
     Indication: PAIN
  7. ATARAX [Suspect]
     Indication: CYSTITIS INTERSTITIAL
     Dosage: UNK
  8. VISTARIL [Suspect]
     Indication: CYSTITIS INTERSTITIAL
     Dosage: 25MG UP TO SIX TIMES A DAY
  9. DETROL [Suspect]
     Indication: CYSTITIS INTERSTITIAL
     Dosage: UNK
  10. AMITIZA [Concomitant]
     Indication: CONSTIPATION
     Dosage: UNK

REACTIONS (2)
  - Leukaemia [Unknown]
  - Myelodysplastic syndrome [Unknown]
